FAERS Safety Report 7400790-X (Version None)
Quarter: 2011Q2

REPORT INFORMATION
  Report Type: 
  Country: None (occurrence: None)
  Receive Date: 20110407
  Receipt Date: 20110331
  Transmission Date: 20111010
  Serious: Yes (Hospitalization, Disabling)
  Sender: FDA-Public Use
  Company Number: B0710398A

PATIENT
  Sex: Female
  Weight: 42 kg

DRUGS (7)
  1. XELODA [Suspect]
     Dosage: 2400MG PER DAY
     Route: 048
     Dates: start: 20100119, end: 20100413
  2. SELBEX [Concomitant]
     Route: 048
  3. XELODA [Suspect]
     Dosage: 2400MG PER DAY
     Route: 048
     Dates: start: 20091209, end: 20091219
  4. LOXONIN [Concomitant]
     Route: 048
  5. PYDOXAL [Concomitant]
     Route: 048
     Dates: start: 20091208, end: 20100413
  6. TYKERB [Suspect]
     Indication: BREAST CANCER
     Dosage: 1250MG PER DAY
     Route: 048
     Dates: start: 20091209, end: 20091219
  7. TYKERB [Suspect]
     Dosage: 1250MG PER DAY
     Route: 048
     Dates: start: 20100119, end: 20100413

REACTIONS (3)
  - RENAL IMPAIRMENT [None]
  - CARDIAC DISORDER [None]
  - BLOOD CREATININE INCREASED [None]
